FAERS Safety Report 8557567-1 (Version None)
Quarter: 2012Q3

REPORT INFORMATION
  Report Type: 
  Country: None (occurrence: None)
  Receive Date: 20120801
  Receipt Date: 20120718
  Transmission Date: 20120928
  Serious: Yes (Other)
  Sender: FDA-Public Use
  Company Number: US-JUTA-2012-13252

PATIENT
  Age: 37 Year
  Sex: Male

DRUGS (1)
  1. TAMOXIFEN CITRATE [Suspect]
     Indication: ANAPLASTIC ASTROCYTOMA
     Dosage: 200 MG, DAILY
     Route: 065

REACTIONS (2)
  - OVERDOSE [None]
  - CYSTOID MACULAR OEDEMA [None]
